FAERS Safety Report 23636824 (Version 1)
Quarter: 2024Q1

REPORT INFORMATION
  Report Type: Spontaneous
  Country: US (occurrence: US)
  Receive Date: 20240315
  Receipt Date: 20240315
  Transmission Date: 20240410
  Serious: No
  Sender: FDA-Public Use
  Company Number: US-PFIZER INC-PV202400035307

PATIENT

DRUGS (1)
  1. ESTRING [Suspect]
     Active Substance: ESTRADIOL
     Indication: Urinary tract infection
     Dosage: UNK

REACTIONS (3)
  - Fertility increased [Unknown]
  - Off label use [Unknown]
  - Drug effective for unapproved indication [Unknown]
